FAERS Safety Report 9227727 (Version 1)
Quarter: 2013Q2

REPORT INFORMATION
  Report Type: Spontaneous
  Country: US (occurrence: None)
  Receive Date: 20130411
  Receipt Date: 20130411
  Transmission Date: 20140414
  Serious: Yes (Disabling, Other)
  Sender: FDA-Public Use
  Company Number: None

PATIENT
  Age: 37 Year
  Sex: Female
  Weight: 70.31 kg

DRUGS (1)
  1. BOTOX [Suspect]
     Indication: SKIN COSMETIC PROCEDURE
     Dosage: 20 UNITS FIRST TIME. ID
     Route: 023
     Dates: start: 20121120, end: 20121120

REACTIONS (17)
  - Anxiety [None]
  - Diarrhoea [None]
  - Vomiting [None]
  - Vision blurred [None]
  - Dysarthria [None]
  - Dyspnoea [None]
  - Malaise [None]
  - Neck pain [None]
  - Back pain [None]
  - Muscular weakness [None]
  - Chest pain [None]
  - Palpitations [None]
  - Headache [None]
  - Depression [None]
  - Suicidal ideation [None]
  - Confusional state [None]
  - Disorientation [None]
